FAERS Safety Report 25625525 (Version 1)
Quarter: 2025Q3

REPORT INFORMATION
  Report Type: Spontaneous
  Country: US (occurrence: US)
  Receive Date: 20250731
  Receipt Date: 20250731
  Transmission Date: 20251021
  Serious: Yes (Life-Threatening, Hospitalization, Other)
  Sender: LUPIN
  Company Number: US-LUPIN PHARMACEUTICALS INC.-2025-06748

PATIENT
  Age: 75 Year
  Sex: Male

DRUGS (1)
  1. SEVELAMER HYDROCHLORIDE [Suspect]
     Active Substance: SEVELAMER HYDROCHLORIDE
     Indication: Chronic kidney disease
     Route: 065

REACTIONS (4)
  - Foreign body aspiration [Recovered/Resolved]
  - Tachycardia [Unknown]
  - Hypoxia [Recovering/Resolving]
  - Bronchial obstruction [Recovering/Resolving]
